FAERS Safety Report 5713806-3 (Version None)
Quarter: 2008Q2

REPORT INFORMATION
  Report Type: 
  Country: None (occurrence: None)
  Receive Date: 20080421
  Receipt Date: 20080417
  Transmission Date: 20081010
  Serious: Yes (Hospitalization, Other)
  Sender: FDA-Public Use
  Company Number: 2008S1002643

PATIENT
  Age: 53 Year
  Sex: Female
  Weight: 70.3075 kg

DRUGS (3)
  1. EZ PREP KIT [Suspect]
     Indication: LAXATIVE SUPPORTIVE CARE
     Dosage: 15ML;X1; PO
     Route: 048
     Dates: start: 20080401, end: 20080401
  2. PROVIGIL [Concomitant]
  3. AMBIEN [Concomitant]

REACTIONS (8)
  - ABDOMINAL DISTENSION [None]
  - COLONIC POLYP [None]
  - CONSTIPATION [None]
  - HEADACHE [None]
  - NAUSEA [None]
  - NERVOUSNESS [None]
  - THIRST [None]
  - VOMITING PROJECTILE [None]
